FAERS Safety Report 9122468 (Version 2)
Quarter: 2013Q2

REPORT INFORMATION
  Report Type: Spontaneous
  Country: US (occurrence: None)
  Receive Date: 20120508
  Receipt Date: 20120709
  Transmission Date: 20140414
  Serious: Yes (Other)
  Sender: FDA-Public Use
  Company Number: 2011HGS-002983

PATIENT
  Age: 60 Year
  Sex: Female
  Weight: 76.2 kg

DRUGS (10)
  1. BENLYSTA [Suspect]
     Indication: SYSTEMIC LUPUS ERYTHEMATOSUS
     Route: 041
     Dates: start: 201106
  2. FOSAMAX [Suspect]
     Indication: OSTEOPENIA
     Route: 048
     Dates: start: 201107, end: 201108
  3. PREVACID (LANSOPRAZOLE) (LANSOPRAZOLE) [Concomitant]
  4. PREDNISONE (PREDNISONE)(PREDNISONE) [Concomitant]
  5. METFORMIN (METFORMIN) (METFORMIN) [Concomitant]
  6. TYLENOL (PARACETAMOL) (PARACETAMOL) [Concomitant]
  7. COUMADIN (WARFARIN SODIUM) (WARFARIN SODIUM) [Concomitant]
  8. AMITRYPTYLINE (AMITRYPTYLINE) (AMITRYPTYLINE) [Concomitant]
  9. EFFEXOR XR (VENLAFAXINE HYDROCHLORIDE) (VENLAFAXINE HYDROCHLORIDE) [Concomitant]
  10. PROPRANOLOL (PROPRANOLOL) (PROPRANOLOL) [Concomitant]

REACTIONS (5)
  - Dry mouth [None]
  - Glossitis [None]
  - Glossodynia [None]
  - Stomatitis [None]
  - Oral pain [None]
